FAERS Safety Report 26084854 (Version 1)
Quarter: 2025Q4

REPORT INFORMATION
  Report Type: Other
  Country: US (occurrence: US)
  Receive Date: 20251124
  Receipt Date: 20251124
  Transmission Date: 20260117
  Serious: No
  Sender: MADRIGAL PHARMACEUTICALS
  Company Number: US-MADRIGAL PHARMACEUTICALS, INC-2025USREZ13579

PATIENT

DRUGS (2)
  1. REZDIFFRA [Suspect]
     Active Substance: RESMETIROM
     Indication: Metabolic dysfunction-associated steatohepatitis
     Dosage: 80 MILLIGRAM, QD
     Route: 048
     Dates: start: 202510
  2. REZDIFFRA [Suspect]
     Active Substance: RESMETIROM
     Dosage: UNK
     Route: 048

REACTIONS (3)
  - Ocular icterus [Unknown]
  - Dry mouth [Recovered/Resolved]
  - Hunger [Unknown]

NARRATIVE: CASE EVENT DATE: 20250101
